FAERS Safety Report 16711306 (Version 2)
Quarter: 2020Q2

REPORT INFORMATION
  Report Type: Report from Study
  Country: US (occurrence: US)
  Receive Date: 20190816
  Receipt Date: 20200615
  Transmission Date: 20200713
  Serious: Yes (Death)
  Sender: FDA-Public Use
  Company Number: US-JNJFOC-20190812766

PATIENT
  Age: 41 Year
  Sex: Male

DRUGS (4)
  1. LATUDA [Concomitant]
     Active Substance: LURASIDONE HYDROCHLORIDE
     Indication: DEPRESSION
     Dates: start: 20190528
  2. SPRAVATO [Suspect]
     Active Substance: ESKETAMINE
     Indication: DEPRESSION
     Dates: start: 20190731, end: 20190731
  3. SPRAVATO [Suspect]
     Active Substance: ESKETAMINE
     Dates: start: 20190805, end: 20190805
  4. SPRAVATO [Suspect]
     Active Substance: ESKETAMINE
     Dates: start: 20190808, end: 20190808

REACTIONS (2)
  - Drug ineffective [Unknown]
  - Completed suicide [Fatal]

NARRATIVE: CASE EVENT DATE: 20190731
